FAERS Safety Report 6316548-9 (Version None)
Quarter: 2009Q3

REPORT INFORMATION
  Report Type: 
  Country: None (occurrence: None)
  Receive Date: 20090820
  Receipt Date: 20090819
  Transmission Date: 20100115
  Serious: No
  Sender: FDA-Public Use
  Company Number: US-B.I. PHARMACEUTICALS,INC./RIDGEFIELD-2009-BP-09772BP

PATIENT

DRUGS (3)
  1. VIRAMUNE [Suspect]
     Dates: start: 20080101
  2. EPIVIR [Suspect]
  3. ZERIT [Suspect]

REACTIONS (2)
  - ABDOMINAL DISCOMFORT [None]
  - ABDOMINAL DISTENSION [None]
